FAERS Safety Report 6884593-0 (Version None)
Quarter: 2010Q3

REPORT INFORMATION
  Report Type: 
  Country: None (occurrence: None)
  Receive Date: 20100727
  Receipt Date: 20100709
  Transmission Date: 20110219
  Serious: Yes (Other)
  Sender: FDA-Public Use
  Company Number: ACO_01374_2010

PATIENT
  Sex: Female
  Weight: 79.3795 kg

DRUGS (7)
  1. AMPYRA [Suspect]
     Indication: GAIT DISTURBANCE
     Dosage: (10 MG BID ORAL)
     Route: 048
     Dates: start: 20100401, end: 20100530
  2. PROVIGIL [Concomitant]
  3. BACLOFEN [Concomitant]
  4. LEVOTHYROXINE [Concomitant]
  5. HYDROCHLOROTHIAZIDE [Concomitant]
  6. LEXAPRO [Concomitant]
  7. AMLODIPINE/BENAZAPRIL [Concomitant]

REACTIONS (3)
  - DRUG INEFFECTIVE [None]
  - DRUG WITHDRAWAL HEADACHE [None]
  - HEADACHE [None]
